FAERS Safety Report 17546457 (Version 1)
Quarter: 2020Q1

REPORT INFORMATION
  Report Type: Spontaneous
  Country: US (occurrence: US)
  Receive Date: 20200316
  Receipt Date: 20200316
  Transmission Date: 20200409
  Serious: Yes (Other)
  Sender: FDA-Public Use
  Company Number: None

PATIENT
  Age: 42 Year
  Sex: Male
  Weight: 83.25 kg

DRUGS (2)
  1. SOUND BODY ALLERGY RELIEF [Suspect]
     Active Substance: LORATADINE
     Indication: DUST ALLERGY
     Dosage: ?          QUANTITY:1 TABLET(S);?
     Route: 048
  2. SOUND BODY ALLERGY RELIEF [Suspect]
     Active Substance: LORATADINE
     Indication: MYCOTIC ALLERGY
     Dosage: ?          QUANTITY:1 TABLET(S);?
     Route: 048

REACTIONS (4)
  - Dyspnoea [None]
  - Fatigue [None]
  - Swelling [None]
  - Goitre [None]

NARRATIVE: CASE EVENT DATE: 20200215
